FAERS Safety Report 25080322 (Version 3)
Quarter: 2025Q2

REPORT INFORMATION
  Report Type: Report from Study
  Country: US (occurrence: US)
  Receive Date: 20250315
  Receipt Date: 20250514
  Transmission Date: 20250717
  Serious: Yes (Other)
  Sender: ABBVIE
  Company Number: US-ABBVIE-6174765

PATIENT
  Age: 65 Year
  Sex: Female

DRUGS (1)
  1. CREON [Suspect]
     Active Substance: PANCRELIPASE AMYLASE\PANCRELIPASE LIPASE\PANCRELIPASE PROTEASE
     Indication: Pancreatic failure
     Route: 048

REACTIONS (11)
  - Pancreaticoduodenectomy [Unknown]
  - Pancreatic failure [Unknown]
  - Incision site impaired healing [Not Recovered/Not Resolved]
  - Diarrhoea [Unknown]
  - Pain [Unknown]
  - Wound dehiscence [Not Recovered/Not Resolved]
  - Wound complication [Unknown]
  - Abdominal pain upper [Unknown]
  - Flatulence [Unknown]
  - Abdominal distension [Unknown]
  - Weight decreased [Unknown]

NARRATIVE: CASE EVENT DATE: 20241101
